FAERS Safety Report 11350511 (Version 1)
Quarter: 2015Q3

REPORT INFORMATION
  Report Type: Spontaneous
  Country: GB (occurrence: GB)
  Receive Date: 20150807
  Receipt Date: 20150807
  Transmission Date: 20151125
  Serious: Yes (Hospitalization)
  Sender: FDA-Public Use
  Company Number: GB-ROXANE LABORATORIES, INC.-2015-RO-01297RO

PATIENT
  Age: 65 Year
  Sex: Male

DRUGS (5)
  1. INDAPAMIDE. [Suspect]
     Active Substance: INDAPAMIDE
     Indication: HYPERTENSION
     Route: 065
  2. LERCANIDIPINE [Suspect]
     Active Substance: LERCANIDIPINE
     Indication: HYPERTENSION
     Route: 065
  3. CITALOPRAM [Suspect]
     Active Substance: CITALOPRAM HYDROBROMIDE
     Indication: DEPRESSED MOOD
     Route: 065
  4. ADALIMUMAB [Concomitant]
     Active Substance: ADALIMUMAB
     Indication: ANKYLOSING SPONDYLITIS
     Route: 050
  5. RAMIPRIL. [Suspect]
     Active Substance: RAMIPRIL
     Indication: HYPERTENSION
     Route: 065

REACTIONS (2)
  - Hyponatraemia [Recovered/Resolved]
  - Parkinsonism [Recovered/Resolved]
